FAERS Safety Report 6917816-X (Version None)
Quarter: 2010Q3

REPORT INFORMATION
  Report Type: 
  Country: None (occurrence: None)
  Receive Date: 20100810
  Receipt Date: 20100806
  Transmission Date: 20110219
  Serious: Yes (Hospitalization)
  Sender: FDA-Public Use
  Company Number: NL-AMGEN-KDC429689

PATIENT
  Sex: Female

DRUGS (9)
  1. NEULASTA [Suspect]
     Indication: CHEMOTHERAPY
     Dates: start: 20100712
  2. NEUPOGEN [Suspect]
     Indication: LYMPHOMA
     Dates: start: 20100712
  3. CYCLOPHOSPHAMIDE [Suspect]
     Dates: start: 20100712
  4. DOXORUBICIN HCL [Suspect]
     Dates: start: 20100712
  5. VINCRISTINE [Suspect]
     Dates: start: 20100712
  6. PREDNISONE [Suspect]
     Dates: start: 20100712
  7. RITUXIMAB [Suspect]
     Dates: start: 20100719
  8. FLUCONAZOLE [Concomitant]
     Dates: start: 20100709
  9. TRIMETHOPRIM + SULFAMETHOXAZOLE [Concomitant]
     Dates: start: 20100709

REACTIONS (1)
  - SEPSIS [None]
